FAERS Safety Report 5750617-7 (Version None)
Quarter: 2008Q2

REPORT INFORMATION
  Report Type: 
  Country: None (occurrence: None)
  Receive Date: 20080528
  Receipt Date: 20080522
  Transmission Date: 20081010
  Serious: Yes (Life-Threatening)
  Sender: FDA-Public Use
  Company Number: FR-AVENTIS-200811891FR

PATIENT
  Age: 29 Year
  Sex: Female

DRUGS (1)
  1. LOVENOX [Suspect]
     Route: 058
     Dates: start: 20080402, end: 20080402

REACTIONS (4)
  - INJECTION SITE OEDEMA [None]
  - PRURITUS [None]
  - RASH GENERALISED [None]
  - TONGUE OEDEMA [None]
